FAERS Safety Report 7945701-3 (Version None)
Quarter: 2011Q4

REPORT INFORMATION
  Report Type: 
  Country: None (occurrence: None)
  Receive Date: 20111129
  Receipt Date: 20101213
  Transmission Date: 20120403
  Serious: No
  Sender: FDA-Public Use
  Company Number: US-MYLANLABS-2009S1021578

PATIENT
  Age: 32 Year
  Sex: Male
  Weight: 71.67 kg

DRUGS (7)
  1. FLEXERIL [Concomitant]
     Indication: BACK PAIN
     Route: 048
  2. CLONAZEPAM [Suspect]
     Route: 048
     Dates: start: 20091206
  3. CLONAZEPAM [Suspect]
     Indication: INSOMNIA
     Route: 048
     Dates: start: 20091206
  4. CLONAZEPAM [Suspect]
     Indication: NEURALGIA
     Route: 048
     Dates: start: 20091206
  5. CLONAZEPAM [Suspect]
     Route: 048
     Dates: start: 20091206
  6. CLONAZEPAM [Suspect]
     Route: 048
     Dates: start: 20091206
  7. CLONAZEPAM [Suspect]
     Indication: ANXIETY
     Route: 048
     Dates: start: 20091206

REACTIONS (4)
  - ANXIETY [None]
  - INSOMNIA [None]
  - DRUG EFFECT DECREASED [None]
  - DRUG WITHDRAWAL SYNDROME [None]
